FAERS Safety Report 12498758 (Version 1)
Quarter: 2016Q2

REPORT INFORMATION
  Report Type: Spontaneous
  Country: US (occurrence: None)
  Receive Date: 20160624
  Receipt Date: 20160624
  Transmission Date: 20160815
  Serious: No
  Sender: FDA-Public Use
  Company Number: None

PATIENT
  Age: 58 Year
  Sex: Female
  Weight: 81.65 kg

DRUGS (1)
  1. TRANSDERM SCOP [Suspect]
     Active Substance: SCOPOLAMINE
     Indication: PROPHYLAXIS AGAINST MOTION SICKNESS
     Dosage: 4 PATCH(ES) 1 EVERY 4 DAYS APPLIED AS MEDICATED PATCH TO SKIN
     Dates: start: 20160615, end: 20160621

REACTIONS (3)
  - Headache [None]
  - Nausea [None]
  - Balance disorder [None]

NARRATIVE: CASE EVENT DATE: 20160623
